FAERS Safety Report 9482269 (Version 3)
Quarter: 2013Q3

REPORT INFORMATION
  Report Type: Spontaneous
  Country: US (occurrence: US)
  Receive Date: 20130828
  Receipt Date: 20130905
  Transmission Date: 20140515
  Serious: Yes (Other)
  Sender: FDA-Public Use
  Company Number: US-BAYER-2013-100661

PATIENT
  Age: 52 Year
  Sex: Male
  Weight: 82 kg

DRUGS (2)
  1. RID 1-2-3 SYSTEM [Suspect]
     Indication: LICE INFESTATION
     Dosage: 1 DOSE, ONCE
     Route: 061
     Dates: start: 20130816, end: 20130816
  2. RANITIDINE [Suspect]
     Dosage: 150 MG, UNK
     Route: 048
     Dates: start: 20130819, end: 20130825

REACTIONS (16)
  - Mass [Recovered/Resolved]
  - Swelling face [Recovered/Resolved]
  - Pain in jaw [Recovered/Resolved]
  - Oedema peripheral [Recovered/Resolved]
  - Pruritus [Recovered/Resolved]
  - Pain in extremity [Recovering/Resolving]
  - Palmar erythema [Recovered/Resolved]
  - Drug administered at inappropriate site [None]
  - Hypersensitivity [Not Recovered/Not Resolved]
  - Rash vesicular [Recovered/Resolved]
  - Regurgitation [Recovered/Resolved]
  - Oropharyngeal pain [Not Recovered/Not Resolved]
  - Foreign body [Recovered/Resolved]
  - Speech disorder [Recovered/Resolved]
  - Oropharyngeal pain [Recovered/Resolved]
  - Muscular weakness [Not Recovered/Not Resolved]
